FAERS Safety Report 9087068 (Version 1)
Quarter: 2013Q1

REPORT INFORMATION
  Report Type: Spontaneous
  Country: FR (occurrence: FR)
  Receive Date: 20130131
  Receipt Date: 20130131
  Transmission Date: 20140127
  Serious: Yes (Hospitalization)
  Sender: FDA-Public Use
  Company Number: FR-PFIZER INC-2013031150

PATIENT
  Age: 71 Year
  Sex: Male

DRUGS (6)
  1. TRIFLUCAN [Suspect]
     Indication: SEPSIS
     Dosage: UNK
     Route: 042
     Dates: start: 20121003, end: 20121016
  2. TAZOCILLINE [Suspect]
     Indication: SEPSIS
     Dosage: UNK
     Route: 042
     Dates: start: 20121003, end: 20121010
  3. VANCOMYCINE [Suspect]
     Indication: SEPSIS
     Dosage: UNK
     Route: 042
     Dates: start: 20121003, end: 20121008
  4. OMEPRAZOLE [Concomitant]
     Dosage: 20 MG, DAILY
     Route: 048
     Dates: start: 2010
  5. IMOVANE [Concomitant]
     Dosage: 7.5 MG, DAILY
     Route: 048
     Dates: start: 2010
  6. TRANSIPEG [Concomitant]
     Dosage: 5.9 G, DAILY
     Route: 048
     Dates: start: 2010

REACTIONS (1)
  - Drug reaction with eosinophilia and systemic symptoms [Recovered/Resolved]
